FAERS Safety Report 24408492 (Version 1)
Quarter: 2024Q4

REPORT INFORMATION
  Report Type: Spontaneous
  Country: US (occurrence: US)
  Receive Date: 20241007
  Receipt Date: 20241007
  Transmission Date: 20250114
  Serious: No
  Sender: RECKITT BENCKISER
  Company Number: US-INDIVIOR US-INDV-143594-2024

PATIENT
  Age: 45 Year
  Sex: Female

DRUGS (3)
  1. SUBOXONE [Suspect]
     Active Substance: BUPRENORPHINE HYDROCHLORIDE\NALOXONE HYDROCHLORIDE
     Indication: Product used for unknown indication
     Dosage: 8 MILLIGRAM, UNK (WEANED OFF)
     Route: 060
     Dates: start: 2016, end: 2023
  2. SUBOXONE [Suspect]
     Active Substance: BUPRENORPHINE HYDROCHLORIDE\NALOXONE HYDROCHLORIDE
     Dosage: 8 MILLIGRAM, QD (TAKES ONE, TAKES HALF)
     Route: 060
     Dates: start: 202312
  3. OMEPRAZOLE [Concomitant]
     Active Substance: OMEPRAZOLE
     Indication: Gastric ulcer
     Dosage: 20 MILLIGRAM, UNKNOWN
     Route: 065

REACTIONS (6)
  - Inappropriate schedule of product discontinuation [Recovered/Resolved]
  - Lethargy [Recovered/Resolved]
  - Intentional underdose [Not Recovered/Not Resolved]
  - Drug effect less than expected [Not Recovered/Not Resolved]
  - Wrong technique in product usage process [Unknown]
  - Drug tolerance [Unknown]

NARRATIVE: CASE EVENT DATE: 20231201
